FAERS Safety Report 10025494 (Version 2)
Quarter: 2014Q1

REPORT INFORMATION
  Report Type: Spontaneous
  Country: US (occurrence: US)
  Receive Date: 20140320
  Receipt Date: 20140320
  Transmission Date: 20141002
  Serious: Yes (Other)
  Sender: FDA-Public Use
  Company Number: US-RB-063608-14

PATIENT
  Age: 39 Year
  Sex: Female

DRUGS (7)
  1. SUBOXONE FILM [Suspect]
     Indication: DRUG DEPENDENCE
     Dosage: SUBOXONE FILM; CUTTING TO ACHIEVE DOSING AND TAKING 1/2 STRIP 3 TIMES DAILY
     Route: 060
     Dates: start: 201210, end: 201301
  2. SUBOXONE FILM [Suspect]
     Dosage: CUTTING FILM AND TAKING 1/4 STRIP IN THE MORNING AND NIGHT AND 1/2 STRIP IN THE AFTERNOON
     Route: 060
     Dates: start: 201301, end: 201303
  3. SUBOXONE FILM [Suspect]
     Dosage: CUTTING FILM AND TAKING 1/4 STRIP IN THE MORNING AND EVENING AND 1/2 STRIP IN THE AFTERNOON
     Route: 060
     Dates: start: 201304, end: 201401
  4. SUBOXONE FILM [Suspect]
     Dosage: CUTTING AND TAKING 1/2 STRIP DAILY
     Route: 060
     Dates: start: 201401
  5. KEPPRA [Concomitant]
     Indication: CONVULSION
     Route: 048
     Dates: start: 201303
  6. NICOTINE [Concomitant]
     Indication: NICOTINE DEPENDENCE
     Dosage: LESS THAN ONE PACK DAILY
     Route: 055
  7. PHENOBARBITAL [Concomitant]
     Indication: CONVULSION
     Dosage: DOSING DETAILS UNKNOWN; DAILY USE SINCE AGE 18 YEARS
     Route: 048
     Dates: start: 1992, end: 201303

REACTIONS (7)
  - Wrong technique in drug usage process [Not Recovered/Not Resolved]
  - Maternal exposure during pregnancy [Recovered/Resolved]
  - Back pain [Not Recovered/Not Resolved]
  - Anxiety [Recovered/Resolved]
  - Drug withdrawal syndrome [Recovered/Resolved]
  - Foetal growth restriction [Recovered/Resolved]
  - Premature labour [Recovered/Resolved]
